FAERS Safety Report 9415562 (Version 2)
Quarter: 2013Q3

REPORT INFORMATION
  Report Type: Spontaneous
  Country: BE (occurrence: BE)
  Receive Date: 20130723
  Receipt Date: 20130731
  Transmission Date: 20140515
  Serious: Yes (Other)
  Sender: FDA-Public Use
  Company Number: BE-PFIZER INC-2013188161

PATIENT
  Age: 42 Year
  Sex: Female
  Weight: 65 kg

DRUGS (3)
  1. CHAMPIX [Suspect]
     Indication: SMOKING CESSATION THERAPY
     Dosage: STARTING PACKAGE
     Route: 048
     Dates: start: 20130320, end: 2013
  2. CHAMPIX [Interacting]
     Dosage: 1 MG, 2X/DAY
     Route: 048
     Dates: start: 2013, end: 20130425
  3. VENLAFAXINE HCL [Interacting]
     Indication: DEPRESSION
     Dosage: 150 MG, UNK
     Route: 048
     Dates: start: 2009

REACTIONS (3)
  - Drug interaction [Recovered/Resolved]
  - Suicidal ideation [Recovered/Resolved]
  - Depression [Recovered/Resolved]
